FAERS Safety Report 11410610 (Version 4)
Quarter: 2015Q3

REPORT INFORMATION
  Report Type: Spontaneous
  Country: US (occurrence: US)
  Receive Date: 20150824
  Receipt Date: 20150918
  Transmission Date: 20151125
  Serious: Yes (Hospitalization, Other)
  Sender: FDA-Public Use
  Company Number: US-PFIZER INC-2015277371

PATIENT
  Age: 45 Year
  Sex: Male
  Weight: 100 kg

DRUGS (11)
  1. VIAGRA [Suspect]
     Active Substance: SILDENAFIL CITRATE
     Indication: ERECTILE DYSFUNCTION
     Dosage: 100 MG, ONCE EVERY TWO WEEKS
     Route: 048
     Dates: end: 20150809
  2. TRAZODONE [Suspect]
     Active Substance: TRAZODONE HYDROCHLORIDE
     Indication: SLEEP DISORDER
     Dosage: 100 MG, 1X/DAY, AT NIGHT
     Route: 048
     Dates: start: 2013
  3. OMEGA ACID [Concomitant]
     Dosage: UNK
  4. OXYCODONE [Concomitant]
     Active Substance: OXYCODONE
     Indication: PAIN
     Dosage: UNK UNK, 1X/DAY, (EVERY NIGHT )
  5. SEROQUEL [Concomitant]
     Active Substance: QUETIAPINE FUMARATE
     Dosage: UNK
  6. HYDROCHLOROTHIAZIDE. [Concomitant]
     Active Substance: HYDROCHLOROTHIAZIDE
     Indication: CARDIAC DISORDER
     Dosage: 25 MG, 1X/DAY
  7. DEPAKOTE [Concomitant]
     Active Substance: DIVALPROEX SODIUM
     Indication: BIPOLAR DISORDER
     Dosage: 500 MG, 4X/DAY
  8. NEURONTIN [Concomitant]
     Active Substance: GABAPENTIN
     Indication: SEIZURE
     Dosage: 500 MG, 2X/DAY
  9. NEURONTIN [Concomitant]
     Active Substance: GABAPENTIN
     Indication: NEUROPATHY PERIPHERAL
  10. MULTIVITAMIN [Concomitant]
     Active Substance: VITAMINS
  11. NAPROXEN. [Concomitant]
     Active Substance: NAPROXEN
     Indication: SWELLING
     Dosage: 2 500MG A DAY

REACTIONS (9)
  - Penis disorder [Unknown]
  - Erection increased [Recovering/Resolving]
  - Erectile dysfunction [Unknown]
  - Pain [Unknown]
  - Penile vascular disorder [Recovering/Resolving]
  - Feeling abnormal [Unknown]
  - Skin discolouration [Recovering/Resolving]
  - Scar [Not Recovered/Not Resolved]
  - Penis injury [Unknown]

NARRATIVE: CASE EVENT DATE: 2015
